FAERS Safety Report 6741302-3 (Version None)
Quarter: 2010Q2

REPORT INFORMATION
  Report Type: 
  Country: None (occurrence: None)
  Receive Date: 20100526
  Receipt Date: 20100519
  Transmission Date: 20101027
  Serious: Yes (Other)
  Sender: FDA-Public Use
  Company Number: GB-PURDUE-GBR-2010-0006576

PATIENT
  Age: 66 Year
  Sex: Female
  Weight: 84 kg

DRUGS (5)
  1. OXYCODONE HYDROCHLORIDE [Suspect]
     Indication: PAIN
     Dosage: 5 MG, UNK
     Route: 048
     Dates: start: 20100513, end: 20100513
  2. GABAPENTIN [Concomitant]
  3. LANSOPRAZOLE [Concomitant]
  4. NAPROXEN [Concomitant]
  5. PARACETAMOL [Concomitant]
     Dosage: UNK

REACTIONS (3)
  - BLOOD PRESSURE DECREASED [None]
  - LIP SWELLING [None]
  - RASH [None]
